FAERS Safety Report 9133509 (Version 1)
Quarter: 2013Q1

REPORT INFORMATION
  Report Type: Spontaneous
  Country: US (occurrence: US)
  Receive Date: 20130124
  Receipt Date: 20130124
  Transmission Date: 20140127
  Serious: Yes (Other)
  Sender: FDA-Public Use
  Company Number: US-BRACCO-007995

PATIENT
  Age: 40 Year
  Sex: Female
  Weight: 57 kg

DRUGS (3)
  1. MULTIHANCE [Suspect]
     Indication: NUCLEAR MAGNETIC RESONANCE IMAGING BRAIN
     Route: 042
     Dates: start: 20120501, end: 20120501
  2. MULTIHANCE [Suspect]
     Indication: MUSCULAR WEAKNESS
     Route: 042
     Dates: start: 20120501, end: 20120501
  3. MULTIHANCE [Suspect]
     Indication: MULTIPLE SCLEROSIS
     Route: 042
     Dates: start: 20120501, end: 20120501

REACTIONS (1)
  - Hypersensitivity [Recovered/Resolved]
